FAERS Safety Report 19640664 (Version 1)
Quarter: 2021Q3

REPORT INFORMATION
  Report Type: Spontaneous
  Country: CN (occurrence: CN)
  Receive Date: 20210730
  Receipt Date: 20210730
  Transmission Date: 20211014
  Serious: Yes (Hospitalization, Other)
  Sender: FDA-Public Use
  Company Number: CN-009507513-2107CHN007440

PATIENT
  Age: 75 Year
  Sex: Male

DRUGS (4)
  1. CATEQUENTINIB. [Suspect]
     Active Substance: CATEQUENTINIB
     Indication: SMALL CELL LUNG CANCER METASTATIC
     Dosage: UNK
     Route: 048
  2. TEMOZOLOMIDE. [Suspect]
     Active Substance: TEMOZOLOMIDE
     Indication: SMALL CELL LUNG CANCER METASTATIC
     Dosage: UNK
     Route: 048
  3. TEMOZOLOMIDE. [Suspect]
     Active Substance: TEMOZOLOMIDE
     Indication: METASTASES TO CENTRAL NERVOUS SYSTEM
  4. CATEQUENTINIB. [Suspect]
     Active Substance: CATEQUENTINIB
     Indication: METASTASES TO CENTRAL NERVOUS SYSTEM

REACTIONS (3)
  - Product use in unapproved indication [Unknown]
  - Drug-induced liver injury [Unknown]
  - Cholestatic liver injury [Unknown]

NARRATIVE: CASE EVENT DATE: 20200306
